FAERS Safety Report 10223021 (Version 1)
Quarter: 2014Q2

REPORT INFORMATION
  Report Type: Spontaneous
  Country: JP (occurrence: JP)
  Receive Date: 20140607
  Receipt Date: 20140607
  Transmission Date: 20141212
  Serious: Yes (Other)
  Sender: FDA-Public Use
  Company Number: PHHY2014JP068423

PATIENT
  Age: 31 Year
  Sex: Female

DRUGS (7)
  1. CICLOSPORIN [Suspect]
     Dosage: 150 MG, PER DAY
  2. CICLOSPORIN [Suspect]
     Dosage: 80 MG, PER DAY
  3. AZATHIOPRINE [Suspect]
     Dosage: 50 MG, PER DAY
  4. AZATHIOPRINE [Suspect]
     Dosage: 75 MG, PER DAY
  5. METHYLPREDNISOLONE [Suspect]
     Dosage: 2 MG, PER DAY
  6. METHYLPREDNISOLONE [Suspect]
     Dosage: 24 MG, PER DAY
  7. PROBENECID [Suspect]

REACTIONS (6)
  - Drug level increased [Unknown]
  - Blood creatinine increased [Unknown]
  - Premature labour [Unknown]
  - Oedema peripheral [Unknown]
  - Haemoglobin decreased [Unknown]
  - Maternal exposure during pregnancy [Unknown]
